FAERS Safety Report 8955696 (Version 1)
Quarter: 2012Q4

REPORT INFORMATION
  Report Type: 
  Country: GB (occurrence: GB)
  Receive Date: 20121210
  Receipt Date: 20121210
  Transmission Date: 20130627
  Serious: Yes (Life-Threatening, Hospitalization, Other)
  Sender: FDA-Public Use
  Company Number: GB-RANBAXY-2012R1-62745

PATIENT
  Age: 84 Year
  Sex: Female

DRUGS (6)
  1. AMOXICILLIN\CLAVULANATE POTASSIUM [Suspect]
     Indication: NOSOCOMIAL INFECTION
     Dosage: 625 mg, tid
     Route: 048
     Dates: start: 20121018, end: 20121023
  2. AMOXICILLIN\CLAVULANATE POTASSIUM [Suspect]
     Indication: PNEUMONIA
  3. TAZOCIN [Suspect]
     Indication: NOSOCOMIAL INFECTION
     Dosage: 4.5 g, tid
     Route: 042
     Dates: start: 20121015, end: 20121018
  4. TAZOCIN [Suspect]
     Indication: PNEUMONIA
  5. BISOPROLOL [Concomitant]
     Indication: PRODUCT USED FOR UNKNOWN INDICATION
     Dosage: UNK
     Route: 065
  6. DIGOXIN [Concomitant]
     Indication: PRODUCT USED FOR UNKNOWN INDICATION
     Dosage: UNK
     Route: 065

REACTIONS (5)
  - Diarrhoea [Unknown]
  - Renal failure acute [Unknown]
  - Pathogen resistance [Recovering/Resolving]
  - Clostridium difficile infection [Recovering/Resolving]
  - Dehydration [Unknown]
